FAERS Safety Report 8333996-6 (Version None)
Quarter: 2012Q2

REPORT INFORMATION
  Report Type: 
  Country: None (occurrence: None)
  Receive Date: 20120503
  Receipt Date: 20120425
  Transmission Date: 20120825
  Serious: Yes (Hospitalization)
  Sender: FDA-Public Use
  Company Number: US-ROCHE-1056775

PATIENT
  Sex: Female
  Weight: 46.195 kg

DRUGS (2)
  1. XOLAIR [Suspect]
     Indication: PRODUCT USED FOR UNKNOWN INDICATION
  2. LEVOTHYROXINE SODIUM [Concomitant]

REACTIONS (4)
  - SYNCOPE [None]
  - DIZZINESS [None]
  - MALAISE [None]
  - SPINAL FRACTURE [None]
